FAERS Safety Report 6235794-6 (Version None)
Quarter: 2009Q2

REPORT INFORMATION
  Report Type: 
  Country: None (occurrence: None)
  Receive Date: 20090619
  Receipt Date: 20090609
  Transmission Date: 20091009
  Serious: Yes (Hospitalization)
  Sender: FDA-Public Use
  Company Number: FR-PFIZER INC-2009224552

PATIENT
  Age: 61 Year

DRUGS (10)
  1. LONOTEN [Suspect]
     Dosage: 10 MG, 1X/DAY
     Route: 048
  2. PRAZOSIN HCL [Interacting]
     Dosage: 5 MG, 1X/DAY
     Route: 048
  3. ISOPTIN - SLOW RELEASE [Interacting]
     Dosage: 240 MG, 1X/DAY
     Route: 048
  4. COKENZEN [Interacting]
     Dosage: 1 DF, 1X/DAY
     Route: 048
  5. TAHOR [Concomitant]
  6. MOPRAL [Concomitant]
  7. SYMBICORT TURBUHALER ^ASTRAZENECA^ [Concomitant]
  8. VENTOLIN [Concomitant]
  9. TEMESTA [Concomitant]
  10. IPRATROPIUM BROMIDE [Concomitant]

REACTIONS (3)
  - DRUG INTERACTION [None]
  - ORTHOSTATIC HYPOTENSION [None]
  - VERTIGO [None]
